FAERS Safety Report 7072673-9 (Version None)
Quarter: 2010Q4

REPORT INFORMATION
  Report Type: 
  Country: None (occurrence: None)
  Receive Date: 20101029
  Receipt Date: 20100226
  Transmission Date: 20110411
  Serious: No
  Sender: FDA-Public Use
  Company Number: A0847045A

PATIENT
  Age: 86 Year
  Sex: Male

DRUGS (4)
  1. ADVAIR DISKUS 100/50 [Suspect]
     Indication: CHRONIC OBSTRUCTIVE PULMONARY DISEASE
     Dosage: 1PUFF TWICE PER DAY
     Route: 055
     Dates: start: 20090101
  2. ATROVENT [Concomitant]
  3. VERAPAMIL [Concomitant]
  4. ASPIRIN [Concomitant]

REACTIONS (4)
  - CHAPPED LIPS [None]
  - DRUG INEFFECTIVE [None]
  - DRY MOUTH [None]
  - MICTURITION DISORDER [None]
